FAERS Safety Report 20631740 (Version 1)
Quarter: 2022Q1

REPORT INFORMATION
  Report Type: Spontaneous
  Country: CN (occurrence: CN)
  Receive Date: 20220324
  Receipt Date: 20220324
  Transmission Date: 20220423
  Serious: Yes (Hospitalization, Other)
  Sender: FDA-Public Use
  Company Number: CN-009507513-2203CHN005908

PATIENT
  Age: 61 Year
  Sex: Male

DRUGS (7)
  1. KEYTRUDA [Suspect]
     Active Substance: PEMBROLIZUMAB
     Indication: Lung adenocarcinoma stage IV
     Dosage: UNK
     Dates: start: 20190626, end: 20191025
  2. KEYTRUDA [Suspect]
     Active Substance: PEMBROLIZUMAB
     Dosage: UNK
     Dates: start: 20191114, end: 20200109
  3. KEYTRUDA [Suspect]
     Active Substance: PEMBROLIZUMAB
     Dosage: UNK
     Dates: start: 20200225, end: 20200604
  4. KEYTRUDA [Suspect]
     Active Substance: PEMBROLIZUMAB
     Dosage: UNK
     Dates: start: 20200708
  5. PEMETREXED [Concomitant]
     Active Substance: PEMETREXED
     Indication: Lung adenocarcinoma stage IV
     Dosage: UNK
     Dates: start: 20190626, end: 20191025
  6. PEMETREXED [Concomitant]
     Active Substance: PEMETREXED
     Dosage: UNK
     Dates: start: 20191114, end: 20200109
  7. CISPLATIN [Concomitant]
     Active Substance: CISPLATIN
     Indication: Lung adenocarcinoma stage IV
     Dosage: UNK
     Dates: start: 20190626, end: 20191025

REACTIONS (9)
  - Delirium [Recovering/Resolving]
  - Delirium [Recovering/Resolving]
  - Immune-mediated hepatitis [Recovering/Resolving]
  - Renal failure [Recovering/Resolving]
  - Immune-mediated myocarditis [Recovering/Resolving]
  - Immune-mediated hepatitis [Recovering/Resolving]
  - Renal failure [Recovering/Resolving]
  - Immune-mediated myocarditis [Recovering/Resolving]
  - Hyperthyroidism [Recovering/Resolving]

NARRATIVE: CASE EVENT DATE: 20200801
